FAERS Safety Report 13056628 (Version 1)
Quarter: 2016Q4

REPORT INFORMATION
  Report Type: Spontaneous
  Country: CN (occurrence: CN)
  Receive Date: 20161222
  Receipt Date: 20161222
  Transmission Date: 20170207
  Serious: Yes (Other)
  Sender: FDA-Public Use
  Company Number: CN-ELI_LILLY_AND_COMPANY-CN201612007181

PATIENT
  Sex: Male

DRUGS (3)
  1. HUMALOG MIX75/25 [Suspect]
     Active Substance: INSULIN LISPRO
     Indication: DIABETES MELLITUS
     Dosage: 12-14 U, EACH MORNING
     Route: 058
     Dates: start: 2012
  2. GLUCOBAY [Concomitant]
     Active Substance: ACARBOSE
  3. HUMALOG MIX75/25 [Suspect]
     Active Substance: INSULIN LISPRO
     Dosage: 12-14 U, EACH EVENING
     Route: 058
     Dates: start: 2012

REACTIONS (2)
  - Cerebral thrombosis [Not Recovered/Not Resolved]
  - Abdominal mass [Recovered/Resolved]
